FAERS Safety Report 6675485-0 (Version None)
Quarter: 2010Q2

REPORT INFORMATION
  Report Type: 
  Country: None (occurrence: None)
  Receive Date: 20100409
  Receipt Date: 20100331
  Transmission Date: 20101027
  Serious: Yes (Death)
  Sender: FDA-Public Use
  Company Number: B0643072A

PATIENT
  Sex: Female
  Weight: 9.1 kg

DRUGS (5)
  1. LAMIVUDINE [Suspect]
     Indication: HIV INFECTION
     Dosage: 30MG TWICE PER DAY
     Route: 048
     Dates: start: 20091229, end: 20100320
  2. ZIDOVUDINE [Suspect]
     Indication: HIV INFECTION
     Dosage: 80MG TWICE PER DAY
     Route: 048
     Dates: start: 20091229, end: 20100320
  3. NEVIRAPINE [Suspect]
     Indication: HIV INFECTION
     Dosage: 90MG TWICE PER DAY
     Route: 048
     Dates: start: 20091229, end: 20100320
  4. COTRIM [Concomitant]
     Indication: PROPHYLAXIS
     Route: 048
     Dates: end: 20100320
  5. TONOFERON [Concomitant]
     Indication: ILL-DEFINED DISORDER
     Route: 048
     Dates: end: 20100320

REACTIONS (4)
  - COUGH [None]
  - DEATH [None]
  - NASOPHARYNGITIS [None]
  - PYREXIA [None]
